FAERS Safety Report 8120721-7 (Version None)
Quarter: 2012Q1

REPORT INFORMATION
  Report Type: 
  Country: None (occurrence: None)
  Receive Date: 20120207
  Receipt Date: 20120202
  Transmission Date: 20120608
  Serious: Yes (Death, Hospitalization, Disabling)
  Sender: FDA-Public Use
  Company Number: JP-GILEAD-2007-0013950

PATIENT
  Sex: Male

DRUGS (19)
  1. KALETRA [Suspect]
     Dosage: 6 DF, QD
     Route: 048
     Dates: start: 20021124, end: 20061023
  2. PRIMIDONE [Concomitant]
     Route: 065
     Dates: start: 20030401, end: 20060613
  3. DEPAKENE [Concomitant]
     Dosage: UNK
     Dates: start: 20090729, end: 20100518
  4. BUFFERIN [Concomitant]
     Route: 065
     Dates: start: 20030401
  5. CLONAZEPAM [Concomitant]
     Route: 065
     Dates: start: 20030401
  6. ZERIT [Suspect]
     Indication: HIV INFECTION
     Dosage: 80 MG, QD
     Route: 048
     Dates: start: 20010205, end: 20021123
  7. BROMVALERYLUREA [Concomitant]
     Dosage: UNK
     Dates: start: 20040412, end: 20100518
  8. MERISLON [Concomitant]
     Dosage: UNK
     Dates: start: 20081006, end: 20100518
  9. LAC B [Concomitant]
     Route: 065
     Dates: start: 20030401, end: 20070319
  10. EFAVIRENZ [Suspect]
     Indication: HIV INFECTION
     Dosage: 600 MG, QD
     Route: 048
     Dates: start: 20010205, end: 20021123
  11. PRIMIDONE [Concomitant]
     Route: 065
     Dates: start: 20060614
  12. EPIVIR [Suspect]
     Indication: HIV INFECTION
     Dosage: 300 MG, QD
     Route: 048
     Dates: start: 20010205, end: 20021123
  13. PREZISTA [Suspect]
     Indication: HIV INFECTION
     Dosage: 1200 MG, QD
     Route: 048
     Dates: start: 20081028, end: 20100518
  14. RITONAVIR [Suspect]
     Indication: HIV INFECTION
     Dosage: 200 MG, QD
     Route: 048
     Dates: start: 20081028, end: 20100518
  15. LOPERAMIDE HCL [Concomitant]
     Dosage: UNK
     Dates: start: 20070319, end: 20100518
  16. GANATON [Concomitant]
     Dosage: UNK
     Dates: start: 20090120, end: 20100518
  17. TENOFOVIR DISOPROXIL FUMARATE [Suspect]
     Indication: HIV INFECTION
     Route: 048
     Dates: start: 20021125
  18. KALETRA [Suspect]
     Indication: HIV INFECTION
     Dosage: 4 DF, QD
     Route: 048
     Dates: start: 20061024, end: 20081027
  19. ANAFRANIL [Concomitant]
     Route: 065
     Dates: start: 20030401, end: 20061031

REACTIONS (2)
  - OSTEONECROSIS [None]
  - EPILEPSY [None]
